FAERS Safety Report 6112824-3 (Version None)
Quarter: 2009Q1

REPORT INFORMATION
  Report Type: 
  Country: None (occurrence: None)
  Receive Date: 20090312
  Receipt Date: 20090306
  Transmission Date: 20090719
  Serious: Yes (Other)
  Sender: FDA-Public Use
  Company Number: HQWYE135710AUG04

PATIENT
  Sex: Female

DRUGS (5)
  1. PREMPRO [Suspect]
  2. ESTROGENIC SUBSTANCE [Suspect]
  3. ESTRADIOL [Suspect]
  4. CONJUGATED ESTROGENS [Suspect]
  5. PROVERA [Suspect]

REACTIONS (2)
  - BREAST CANCER METASTATIC [None]
  - HERPES ZOSTER [None]
